FAERS Safety Report 9015284 (Version 1)
Quarter: 2013Q1

REPORT INFORMATION
  Report Type: Spontaneous
  Country: US (occurrence: None)
  Receive Date: 20130109
  Receipt Date: 20130109
  Transmission Date: 20140127
  Serious: No
  Sender: FDA-Public Use
  Company Number: None

PATIENT
  Sex: Male
  Weight: 75.3 kg

DRUGS (5)
  1. RITUXIMAB [Suspect]
     Indication: SEXUALLY TRANSMITTED DISEASE
     Dates: start: 20120606
  2. GLIPIZIDE [Concomitant]
  3. HYDRALAZINE [Concomitant]
  4. INSULIN [Concomitant]
  5. LEVOTHYROXINE [Concomitant]

REACTIONS (1)
  - Bladder mass [None]
